FAERS Safety Report 8378744-9 (Version None)
Quarter: 2012Q2

REPORT INFORMATION
  Report Type: 
  Country: None (occurrence: None)
  Receive Date: 20120522
  Receipt Date: 20120421
  Transmission Date: 20120825
  Serious: Yes (Death)
  Sender: FDA-Public Use
  Company Number: PHHY2012KR042229

PATIENT

DRUGS (3)
  1. STEROIDS NOS [Concomitant]
     Indication: LIVER TRANSPLANT
     Dosage: UNK
  2. BASILIXIMAB [Suspect]
     Indication: LIVER TRANSPLANT
  3. MYCOPHENOLATE MOFETIL [Suspect]
     Indication: LIVER TRANSPLANT

REACTIONS (2)
  - HEPATIC FAILURE [None]
  - HEPATITIS B [None]
